FAERS Safety Report 9980943 (Version 1)
Quarter: 2014Q1

REPORT INFORMATION
  Report Type: Spontaneous
  Country: US (occurrence: US)
  Receive Date: 20140307
  Receipt Date: 20140307
  Transmission Date: 20141002
  Serious: No
  Sender: FDA-Public Use
  Company Number: US-GLAXOSMITHKLINE-A1042107A

PATIENT
  Sex: Male

DRUGS (5)
  1. REQUIP [Suspect]
     Indication: RESTLESS LEGS SYNDROME
     Dosage: 2MG AT NIGHT
     Route: 048
  2. PRILOSEC [Concomitant]
  3. SINGULAIR [Concomitant]
  4. MELOXICAM [Concomitant]
  5. CHROMIUM [Concomitant]

REACTIONS (7)
  - Accidental overdose [Unknown]
  - Insomnia [Unknown]
  - Hypertension [Unknown]
  - Ventricular extrasystoles [Unknown]
  - Cardiac stress test abnormal [Unknown]
  - Ventricular extrasystoles [Unknown]
  - Supraventricular extrasystoles [Unknown]
